FAERS Safety Report 17311682 (Version 1)
Quarter: 2020Q1

REPORT INFORMATION
  Report Type: Spontaneous
  Country: US (occurrence: US)
  Receive Date: 20200123
  Receipt Date: 20200123
  Transmission Date: 20200409
  Serious: Yes (Death, Hospitalization)
  Sender: FDA-Public Use
  Company Number: US-ROCHE-2419779

PATIENT
  Age: 66 Year
  Sex: Male

DRUGS (8)
  1. RITUXIMAB. [Suspect]
     Active Substance: RITUXIMAB
     Indication: MYOPATHY
     Route: 065
  2. PREDNISONE. [Suspect]
     Active Substance: PREDNISONE
     Indication: CHRONIC GRAFT VERSUS HOST DISEASE
  3. BUDESONIDE. [Suspect]
     Active Substance: BUDESONIDE
     Indication: CHRONIC GRAFT VERSUS HOST DISEASE
  4. IMMUNOGLOBULINS (IVIG) [Suspect]
     Active Substance: HUMAN IMMUNOGLOBULIN G
     Indication: MYOPATHY
     Route: 042
  5. RITUXIMAB. [Suspect]
     Active Substance: RITUXIMAB
     Indication: CHRONIC GRAFT VERSUS HOST DISEASE
  6. IMMUNOGLOBULINS (IVIG) [Suspect]
     Active Substance: HUMAN IMMUNOGLOBULIN G
     Indication: CHRONIC GRAFT VERSUS HOST DISEASE
  7. BUDESONIDE. [Suspect]
     Active Substance: BUDESONIDE
     Indication: MYOPATHY
     Route: 065
  8. PREDNISONE. [Suspect]
     Active Substance: PREDNISONE
     Indication: MYOPATHY
     Route: 065

REACTIONS (3)
  - Sinusitis fungal [Fatal]
  - Septic shock [Unknown]
  - Infection [Unknown]

NARRATIVE: CASE EVENT DATE: 201612
